FAERS Safety Report 4425518-7 (Version None)
Quarter: 2004Q3

REPORT INFORMATION
  Report Type: 
  Country: None (occurrence: None)
  Receive Date: 20040809
  Receipt Date: 20040728
  Transmission Date: 20050211
  Serious: Yes (Hospitalization)
  Sender: FDA-Public Use
  Company Number: 2004051748

PATIENT
  Age: 37 Year
  Sex: Female
  Weight: 71.6683 kg

DRUGS (8)
  1. NICOTROL PATCH (NICOTINE) [Suspect]
     Indication: SMOKING CESSATION THERAPY
     Dosage: STEP ONE (15 MG), TRANSDERMAL
     Route: 062
     Dates: end: 20030701
  2. LACTULOSE [Suspect]
     Indication: CONSTIPATION
     Dosage: ORAL
     Route: 048
  3. ESTROGEN NOS [Concomitant]
  4. NAPROXEN [Concomitant]
  5. BUPROPION HYDROCHLORIDE [Concomitant]
  6. RANITIDINE HYDROCHLORIDE [Concomitant]
  7. ACETAMINOPHEN [Concomitant]
  8. DOCUSATE SODIUM [Concomitant]

REACTIONS (9)
  - COLON INJURY [None]
  - CONSTIPATION [None]
  - DIARRHOEA [None]
  - IATROGENIC INJURY [None]
  - IODINE ALLERGY [None]
  - MALAISE [None]
  - MEDICATION ERROR [None]
  - PROCEDURAL COMPLICATION [None]
  - VOMITING [None]
